FAERS Safety Report 12856193 (Version 1)
Quarter: 2016Q4

REPORT INFORMATION
  Report Type: Spontaneous
  Country: US (occurrence: US)
  Receive Date: 20161018
  Receipt Date: 20161018
  Transmission Date: 20170207
  Serious: Yes (Other)
  Sender: FDA-Public Use
  Company Number: US-PFIZER INC-2016470415

PATIENT
  Age: 78 Year
  Sex: Female

DRUGS (3)
  1. FEMARA [Suspect]
     Active Substance: LETROZOLE
     Indication: BREAST CANCER STAGE IV
     Dosage: UNK
     Dates: start: 201506
  2. FASLODEX [Concomitant]
     Active Substance: FULVESTRANT
     Indication: BREAST CANCER STAGE IV
     Dosage: UNK
  3. IBRANCE [Suspect]
     Active Substance: PALBOCICLIB
     Indication: BREAST CANCER STAGE IV
     Dosage: UNK
     Dates: start: 201506

REACTIONS (5)
  - Alopecia [Recovered/Resolved]
  - Abasia [Unknown]
  - Nausea [Unknown]
  - Fatigue [Unknown]
  - Neoplasm progression [Unknown]
